FAERS Safety Report 5375946-0 (Version None)
Quarter: 2007Q2

REPORT INFORMATION
  Report Type: 
  Country: None (occurrence: None)
  Receive Date: 20070627
  Receipt Date: 20070627
  Transmission Date: 20071010
  Serious: No
  Sender: FDA-Public Use
  Company Number: None

PATIENT
  Sex: Female
  Weight: 90.7194 kg

DRUGS (1)
  1. METFORMIN HCL [Suspect]
     Indication: DIABETES MELLITUS NON-INSULIN-DEPENDENT
     Dosage: 2 TABLETS TWICE DAILY PO
     Route: 048
     Dates: start: 20070501, end: 20070625

REACTIONS (2)
  - INCORRECT DRUG DOSAGE FORM ADMINISTERED [None]
  - PHARMACEUTICAL PRODUCT COMPLAINT [None]
